FAERS Safety Report 4277625-X (Version None)
Quarter: 2004Q1

REPORT INFORMATION
  Report Type: 
  Country: None (occurrence: None)
  Receive Date: 20040121
  Receipt Date: 20040113
  Transmission Date: 20041129
  Serious: Yes (Hospitalization)
  Sender: FDA-Public Use
  Company Number: 2003-DE-06135UP

PATIENT
  Age: 68 Year
  Sex: Male
  Weight: 95 kg

DRUGS (11)
  1. MIRAPEX [Suspect]
     Indication: PARKINSON'S DISEASE
     Dosage: SEE IMAGE
     Dates: start: 20031003, end: 20031005
  2. MIRAPEX [Suspect]
     Indication: PARKINSON'S DISEASE
     Dosage: SEE IMAGE
     Dates: start: 20031006, end: 20031008
  3. MIRAPEX [Suspect]
     Indication: PARKINSON'S DISEASE
     Dosage: SEE IMAGE
     Dates: start: 20031009, end: 20031011
  4. MIRAPEX [Suspect]
     Indication: PARKINSON'S DISEASE
     Dosage: SEE IMAGE
     Dates: start: 20031012, end: 20031014
  5. MIRAPEX [Suspect]
     Indication: PARKINSON'S DISEASE
     Dosage: SEE IMAGE
     Dates: start: 20031015, end: 20031017
  6. MIRAPEX [Suspect]
     Indication: PARKINSON'S DISEASE
     Dosage: SEE IMAGE
     Dates: start: 20031018, end: 20031020
  7. MIRAPEX [Suspect]
     Indication: PARKINSON'S DISEASE
     Dosage: SEE IMAGE
     Dates: start: 20031021
  8. CEP-1347/PLACEBO [Suspect]
     Indication: PARKINSON'S DISEASE
     Dosage: 2 ANZ (2 IN 1 D), PO
     Route: 048
     Dates: start: 20030624
  9. DYAZIDE [Concomitant]
  10. VIAGRA [Concomitant]
  11. HYTRIN [Concomitant]

REACTIONS (1)
  - SYNCOPE [None]
